FAERS Safety Report 6961876-7 (Version None)
Quarter: 2010Q3

REPORT INFORMATION
  Report Type: 
  Country: None (occurrence: None)
  Receive Date: 20100902
  Receipt Date: 20100826
  Transmission Date: 20110219
  Serious: No
  Sender: FDA-Public Use
  Company Number: US-BIOGENIDEC-2010BI013319

PATIENT
  Age: 49 Year
  Sex: Male

DRUGS (1)
  1. TYSABRI [Suspect]
     Indication: MULTIPLE SCLEROSIS
     Route: 042
     Dates: start: 20091217

REACTIONS (7)
  - BALANCE DISORDER [None]
  - CENTRAL NERVOUS SYSTEM LESION [None]
  - DRUG INEFFECTIVE [None]
  - FALL [None]
  - LOSS OF CONTROL OF LEGS [None]
  - MUSCULAR WEAKNESS [None]
  - TREMOR [None]
